FAERS Safety Report 12139844 (Version 1)
Quarter: 2016Q1

REPORT INFORMATION
  Report Type: Spontaneous
  Country: FR (occurrence: FR)
  Receive Date: 20160303
  Receipt Date: 20160303
  Transmission Date: 20160526
  Serious: Yes (Other)
  Sender: FDA-Public Use
  Company Number: FR-009507513-1602FRA010520

PATIENT
  Age: 84 Year
  Sex: Male

DRUGS (1)
  1. DIPROSONE [Suspect]
     Active Substance: BETAMETHASONE DIPROPIONATE
     Indication: PSORIASIS
     Dosage: 1 APPLICATION PER DAY
     Route: 003
     Dates: start: 20150924, end: 20150926

REACTIONS (1)
  - Pityriasis rubra pilaris [Not Recovered/Not Resolved]

NARRATIVE: CASE EVENT DATE: 20150926
